FAERS Safety Report 13105696 (Version 2)
Quarter: 2017Q1

REPORT INFORMATION
  Report Type: Spontaneous
  Country: DE (occurrence: DE)
  Receive Date: 20170111
  Receipt Date: 20170119
  Transmission Date: 20170428
  Serious: Yes (Hospitalization, Other)
  Sender: FDA-Public Use
  Company Number: DE-OTSUKA-2017_000080

PATIENT
  Sex: Female

DRUGS (4)
  1. FEANOLLA [Concomitant]
     Active Substance: DESOGESTREL
     Indication: ORAL CONTRACEPTION
     Dosage: UNK
     Route: 065
  2. CANDESARTAN [Concomitant]
     Active Substance: CANDESARTAN
     Indication: PRODUCT USED FOR UNKNOWN INDICATION
     Dosage: UNK
     Route: 065
  3. JINARC [Suspect]
     Active Substance: TOLVAPTAN
     Indication: CONGENITAL CYSTIC KIDNEY DISEASE
     Dosage: 45 (UNIT UNKNOWN), QD (IN MORNING)
     Route: 048
  4. JINARC [Suspect]
     Active Substance: TOLVAPTAN
     Dosage: 15 (UNIT UNKNOWN), QD (IN EVENING)
     Route: 048

REACTIONS (2)
  - Thrombosis [Unknown]
  - Pulmonary embolism [Unknown]
